FAERS Safety Report 21029092 (Version 1)
Quarter: 2022Q2

REPORT INFORMATION
  Report Type: Spontaneous
  Country: US (occurrence: US)
  Receive Date: 20220630
  Receipt Date: 20220630
  Transmission Date: 20220721
  Serious: Yes (Other)
  Sender: FDA-Public Use
  Company Number: US-BAYER-2022A087267

PATIENT
  Age: 74 Year
  Sex: Female
  Weight: 62.585 kg

DRUGS (5)
  1. XARELTO [Suspect]
     Active Substance: RIVAROXABAN
     Indication: Product used for unknown indication
     Dosage: UNK
     Route: 048
  2. ADEMPAS [Suspect]
     Active Substance: RIOCIGUAT
     Indication: Pulmonary arterial hypertension
     Dosage: UNK
     Route: 048
     Dates: start: 20220225
  3. ADEMPAS [Suspect]
     Active Substance: RIOCIGUAT
     Indication: Pulmonary arterial hypertension
     Dosage: 2.5 MG, TID
     Route: 048
     Dates: start: 2022
  4. DULOXETINE [Concomitant]
     Active Substance: DULOXETINE
     Dosage: 30 MG
  5. FLUCONAZOLE [Concomitant]
     Active Substance: FLUCONAZOLE
     Dosage: 200 MG, QD

REACTIONS (4)
  - Haematuria [Unknown]
  - Bladder catheterisation [Unknown]
  - Nasopharyngitis [Unknown]
  - Transfusion [Unknown]

NARRATIVE: CASE EVENT DATE: 20220101
